FAERS Safety Report 18239215 (Version 1)
Quarter: 2020Q3

REPORT INFORMATION
  Report Type: Spontaneous
  Country: FR (occurrence: FR)
  Receive Date: 20200907
  Receipt Date: 20200907
  Transmission Date: 20201103
  Serious: Yes (Other)
  Sender: FDA-Public Use
  Company Number: NVSC2020FR245210

PATIENT
  Age: 57 Year
  Sex: Male

DRUGS (3)
  1. CEFTRIAXONE. [Suspect]
     Active Substance: CEFTRIAXONE
     Indication: DRUG PROVOCATION TEST
     Dosage: 1 G
     Route: 065
  2. CEFPODOXIME [Concomitant]
     Active Substance: CEFPODOXIME
     Indication: DRUG PROVOCATION TEST
     Dosage: 100 MG
     Route: 065
  3. CEFUROXIME AXETIL. [Concomitant]
     Active Substance: CEFUROXIME AXETIL
     Indication: DRUG PROVOCATION TEST
     Dosage: 250 MG
     Route: 065

REACTIONS (2)
  - Angioedema [Unknown]
  - Urticaria [Unknown]
